FAERS Safety Report 11782464 (Version 1)
Quarter: 2015Q4

REPORT INFORMATION
  Report Type: Spontaneous
  Country: US (occurrence: US)
  Receive Date: 20151127
  Receipt Date: 20151127
  Transmission Date: 20160305
  Serious: Yes (Other)
  Sender: FDA-Public Use
  Company Number: US-DRREDDYS-USA/USA/15/0054140

PATIENT
  Sex: Female

DRUGS (1)
  1. MEMANTINE HYDROCHLORIDE [Suspect]
     Active Substance: MEMANTINE HYDROCHLORIDE
     Indication: DEMENTIA ALZHEIMER^S TYPE
     Route: 065

REACTIONS (5)
  - Transplant failure [Recovered/Resolved]
  - Visual acuity reduced [Recovered/Resolved]
  - Optic neuropathy [Unknown]
  - Corneal disorder [Recovered/Resolved]
  - Corneal thickening [Recovered/Resolved]
